FAERS Safety Report 17783354 (Version 1)
Quarter: 2020Q2

REPORT INFORMATION
  Report Type: Spontaneous
  Country: US (occurrence: US)
  Receive Date: 20200514
  Receipt Date: 20200514
  Transmission Date: 20200714
  Serious: No
  Sender: FDA-Public Use
  Company Number: US-PFIZER INC-2020192319

PATIENT
  Age: 36 Year
  Sex: Female

DRUGS (8)
  1. PREGABALIN. [Suspect]
     Active Substance: PREGABALIN
     Indication: NEURALGIA
     Dosage: UNK
  2. LYRICA [Suspect]
     Active Substance: PREGABALIN
     Indication: MUSCULAR WEAKNESS
  3. ROBAXIN [Concomitant]
     Active Substance: METHOCARBAMOL
     Dosage: UNK, 2X/DAY
  4. LYRICA [Suspect]
     Active Substance: PREGABALIN
     Indication: HYPOAESTHESIA
  5. PREGABALIN. [Suspect]
     Active Substance: PREGABALIN
     Indication: MUSCULAR WEAKNESS
  6. LYRICA [Suspect]
     Active Substance: PREGABALIN
     Indication: NEURALGIA
     Dosage: 200 MG, 2X/DAY
  7. PREGABALIN. [Suspect]
     Active Substance: PREGABALIN
     Indication: HYPOAESTHESIA
  8. CELEBREX [Concomitant]
     Active Substance: CELECOXIB
     Dosage: UNK, 2X/DAY

REACTIONS (1)
  - Therapeutic product effect incomplete [Unknown]
